FAERS Safety Report 13967996 (Version 1)
Quarter: 2017Q3

REPORT INFORMATION
  Report Type: Spontaneous
  Country: US (occurrence: US)
  Receive Date: 20170914
  Receipt Date: 20170914
  Transmission Date: 20171128
  Serious: No
  Sender: FDA-Public Use
  Company Number: US-INTERPRAG-PM-OCA2017-00728

PATIENT

DRUGS (1)
  1. OCALIVA [Suspect]
     Active Substance: OBETICHOLIC ACID
     Indication: MULTIPLE SCLEROSIS
     Dosage: 5 MG, QD DAILY
     Route: 048

REACTIONS (2)
  - Product use in unapproved indication [Unknown]
  - Swelling [Unknown]
